FAERS Safety Report 19905282 (Version 1)
Quarter: 2021Q3

REPORT INFORMATION
  Report Type: Spontaneous
  Country: US (occurrence: US)
  Receive Date: 20210930
  Receipt Date: 20210930
  Transmission Date: 20211014
  Serious: No
  Sender: FDA-Public Use
  Company Number: US-CELGENEUS-USA-20210906056

PATIENT
  Sex: Male
  Weight: 81.27 kg

DRUGS (3)
  1. THALOMID [Suspect]
     Active Substance: THALIDOMIDE
     Dosage: 100 MILLIGRAM
     Route: 048
     Dates: start: 202009
  2. THALOMID [Suspect]
     Active Substance: THALIDOMIDE
     Dosage: 100 MILLIGRAM
     Route: 048
     Dates: start: 202106
  3. THALOMID [Suspect]
     Active Substance: THALIDOMIDE
     Indication: PANCYTOPENIA
     Dosage: 100 MILLIGRAM
     Route: 048
     Dates: start: 202003

REACTIONS (1)
  - Hypotension [Unknown]
